FAERS Safety Report 6029280-6 (Version None)
Quarter: 2009Q1

REPORT INFORMATION
  Report Type: 
  Country: None (occurrence: None)
  Receive Date: 20090106
  Receipt Date: 20081217
  Transmission Date: 20090719
  Serious: No
  Sender: FDA-Public Use
  Company Number: US-B.I. PHARMACEUTICALS,INC./RIDGEFIELD-2008-BP-18892BP

PATIENT
  Sex: Female

DRUGS (4)
  1. SPIRIVA [Suspect]
     Indication: VIRAL INFECTION
     Dosage: 18MCG
     Route: 055
     Dates: start: 20081217
  2. MUCINEX [Concomitant]
     Indication: COUGH
     Dates: start: 20081216
  3. SUDAFED S.A. [Concomitant]
     Indication: INCREASED BRONCHIAL SECRETION
     Dates: start: 20081208
  4. AMILORIDE HYDROCHLORIDE [Concomitant]
     Indication: HYPERTENSION
     Dosage: 2.5MG

REACTIONS (1)
  - ERYTHEMA [None]
